FAERS Safety Report 10863038 (Version 1)
Quarter: 2015Q1

REPORT INFORMATION
  Report Type: Report from Study
  Country: FR (occurrence: FR)
  Receive Date: 20150224
  Receipt Date: 20150224
  Transmission Date: 20150721
  Serious: Yes (Death, Other)
  Sender: FDA-Public Use
  Company Number: FR-CELGENE-FRA-2015022954

PATIENT

DRUGS (3)
  1. REVLIMID [Suspect]
     Active Substance: LENALIDOMIDE
     Route: 048
  2. REVLIMID [Suspect]
     Active Substance: LENALIDOMIDE
     Route: 048
  3. REVLIMID [Suspect]
     Active Substance: LENALIDOMIDE
     Indication: WALDENSTROM^S MACROGLOBULINAEMIA
     Route: 048

REACTIONS (8)
  - Waldenstrom^s macroglobulinaemia [Unknown]
  - Anaemia [Unknown]
  - Death [Fatal]
  - Neutropenia [Unknown]
  - Nephrotic syndrome [Unknown]
  - Fatigue [Unknown]
  - Muscle spasms [Unknown]
  - Adverse event [Unknown]
